FAERS Safety Report 7338497-X (Version None)
Quarter: 2011Q1

REPORT INFORMATION
  Report Type: 
  Country: None (occurrence: None)
  Receive Date: 20110210
  Receipt Date: 20101117
  Transmission Date: 20110831
  Serious: No
  Sender: FDA-Public Use
  Company Number: 1000017380

PATIENT
  Age: 68 Year
  Sex: Female

DRUGS (14)
  1. VITAMIN D (VITAMIN D) (VITAMIN D) [Concomitant]
  2. HYDROCHLOROTHIAZIDE [Concomitant]
  3. NAPROXEN [Concomitant]
  4. VIVELLE DOT (ESTRADIOL) (ESTRADIOL) [Concomitant]
  5. SAVELLA [Suspect]
     Indication: FIBROMYALGIA
     Dosage: SEE IMAGE
     Route: 048
     Dates: start: 20101025, end: 20101026
  6. SAVELLA [Suspect]
     Indication: FIBROMYALGIA
     Dosage: SEE IMAGE
     Route: 048
     Dates: start: 20101027, end: 20101030
  7. SAVELLA [Suspect]
     Indication: FIBROMYALGIA
     Dosage: SEE IMAGE
     Route: 048
     Dates: start: 20101024, end: 20101024
  8. SAVELLA [Suspect]
     Indication: FIBROMYALGIA
     Dosage: SEE IMAGE
     Route: 048
     Dates: start: 20101031
  9. CALCIUM (CALCIUM) (CALCIUM) [Concomitant]
  10. OMEPRAZOLE [Concomitant]
  11. DICYCLOMINE [Concomitant]
  12. RAMIPRIL [Concomitant]
  13. PROMETRIUM (PROGESTERONE) (PROGESTERONE) [Concomitant]
  14. RECLAST (ZOLEDRONIC ACID) (ZOLEDRONIC ACID) [Concomitant]

REACTIONS (4)
  - PARAESTHESIA [None]
  - NAUSEA [None]
  - FATIGUE [None]
  - ASTHENIA [None]
